FAERS Safety Report 9345935 (Version 1)
Quarter: 2013Q2

REPORT INFORMATION
  Report Type: Spontaneous
  Country: US (occurrence: US)
  Receive Date: 20130613
  Receipt Date: 20130613
  Transmission Date: 20140414
  Serious: No
  Sender: FDA-Public Use
  Company Number: US-BAYER-2013-072668

PATIENT
  Sex: Female

DRUGS (1)
  1. CLIMARA [Suspect]
     Indication: HOT FLUSH
     Dosage: DAILY DOSE .1 MG
     Route: 062
     Dates: start: 2001

REACTIONS (5)
  - Application site irritation [Not Recovered/Not Resolved]
  - Product adhesion issue [None]
  - Product quality issue [None]
  - Product quality issue [None]
  - Incorrect dose administered [None]
